FAERS Safety Report 5086571-3 (Version None)
Quarter: 2006Q3

REPORT INFORMATION
  Report Type: 
  Country: None (occurrence: None)
  Receive Date: 20060823
  Receipt Date: 20060817
  Transmission Date: 20061208
  Serious: Yes (Hospitalization)
  Sender: FDA-Public Use
  Company Number: US-GLAXOSMITHKLINE-A0617553A

PATIENT
  Age: 41 Year
  Sex: Male

DRUGS (5)
  1. FLOLAN [Suspect]
     Dosage: 15NGKM PER DAY
     Route: 048
     Dates: start: 20030408
  2. SILDENAFIL CITRATE [Suspect]
     Dosage: 80MG THREE TIMES PER DAY
     Route: 048
     Dates: start: 20040629
  3. LASIX [Concomitant]
  4. NEXIUM [Concomitant]
  5. ALDACTONE [Concomitant]

REACTIONS (10)
  - CHEST PAIN [None]
  - DRUG INTERACTION [None]
  - DRUG TOXICITY [None]
  - DYSPNOEA AT REST [None]
  - FLUSHING [None]
  - HEADACHE [None]
  - HYPERKALAEMIA [None]
  - OEDEMA PERIPHERAL [None]
  - PAIN IN JAW [None]
  - VENTRICULAR HYPOKINESIA [None]
